FAERS Safety Report 4682126-0 (Version None)
Quarter: 2005Q2

REPORT INFORMATION
  Report Type: 
  Country: None (occurrence: None)
  Receive Date: 20050603
  Receipt Date: 20050603
  Transmission Date: 20051028
  Serious: Yes (Life-Threatening)
  Sender: FDA-Public Use
  Company Number: None

PATIENT
  Sex: Male
  Weight: 77.1115 kg

DRUGS (2)
  1. CEFTRIAXONE [Suspect]
     Indication: LOBAR PNEUMONIA
     Dosage: 2GM     INTRAVENOU
     Route: 042
     Dates: start: 20050407, end: 20050407
  2. AZITHROMYCIN [Suspect]
     Indication: LOBAR PNEUMONIA
     Dosage: 500MG   ONCE   INTRAVENOU
     Route: 042
     Dates: start: 20050407, end: 20050407

REACTIONS (7)
  - ACIDOSIS [None]
  - BLOOD ELECTROLYTES ABNORMAL [None]
  - DYSPNOEA [None]
  - HEART RATE INCREASED [None]
  - HYPOTENSION [None]
  - PRURITUS [None]
  - RENAL FAILURE [None]
